FAERS Safety Report 7883248-3 (Version None)
Quarter: 2011Q4

REPORT INFORMATION
  Report Type: 
  Country: None (occurrence: None)
  Receive Date: 20111031
  Receipt Date: 20111019
  Transmission Date: 20120403
  Serious: Yes (Death, Other)
  Sender: FDA-Public Use
  Company Number: UTC-010248

PATIENT
  Age: 78 Year
  Sex: Male
  Weight: 71.8 kg

DRUGS (2)
  1. TYVASO [Suspect]
     Indication: PULMONARY ARTERIAL HYPERTENSION
     Dosage: 18-54 MICROGRAMS (4 IN 1 D), INHALATION
     Route: 055
     Dates: start: 20100715
  2. VENTAVIS [Concomitant]

REACTIONS (2)
  - RESPIRATORY FAILURE [None]
  - OPEN REDUCTION OF FRACTURE [None]
